FAERS Safety Report 23653582 (Version 1)
Quarter: 2024Q1

REPORT INFORMATION
  Report Type: Spontaneous
  Country: FR (occurrence: FR)
  Receive Date: 20240320
  Receipt Date: 20240320
  Transmission Date: 20240410
  Serious: Yes (Disabling)
  Sender: FDA-Public Use
  Company Number: None

PATIENT
  Age: 71 Year
  Sex: Male
  Weight: 70 kg

DRUGS (13)
  1. FILGRASTIM [Suspect]
     Active Substance: FILGRASTIM
     Indication: Aplasia
     Dosage: 1 DOSAGE FORM, QD
     Route: 042
     Dates: start: 20231112, end: 20231125
  2. CELLCEPT [Suspect]
     Active Substance: MYCOPHENOLATE MOFETIL
     Indication: Prophylaxis against graft versus host disease
     Dosage: 2 G, QD
     Route: 041
     Dates: start: 20231112, end: 20231207
  3. CYCLOPHOSPHAMIDE [Suspect]
     Active Substance: CYCLOPHOSPHAMIDE
     Indication: Stem cell transplant
     Dosage: 2 G, ONCE/SINGLE
     Route: 042
     Dates: start: 20231101, end: 20231102
  4. CYCLOPHOSPHAMIDE [Suspect]
     Active Substance: CYCLOPHOSPHAMIDE
     Dosage: 5.25 G, ONCE/SINGLE
     Route: 042
     Dates: start: 20231110, end: 20231111
  5. FLUCONAZOLE [Suspect]
     Active Substance: FLUCONAZOLE
     Indication: Infection prophylaxis
     Dosage: 400 MG, QD
     Route: 048
     Dates: start: 20231107, end: 20231205
  6. FLUDARABINE PHOSPHATE [Suspect]
     Active Substance: FLUDARABINE PHOSPHATE
     Indication: Stem cell transplant
     Dosage: 56 MG, QD
     Route: 042
     Dates: start: 20231101, end: 20231105
  7. LANSOPRAZOLE [Suspect]
     Active Substance: LANSOPRAZOLE
     Indication: Prophylaxis against gastrointestinal ulcer
     Dosage: 15 MG, QD
     Route: 048
     Dates: start: 20231031
  8. LEVOTHYROXINE [Suspect]
     Active Substance: LEVOTHYROXINE\LEVOTHYROXINE SODIUM
     Indication: Thyroid disorder
     Dosage: 1 DOSAGE FORM, QD (COMPRIM? S?CABLE)
     Route: 048
     Dates: start: 20231112, end: 20231125
  9. METOCLOPRAMIDE [Suspect]
     Active Substance: METOCLOPRAMIDE
     Indication: Vomiting
     Dosage: 60 MG, QD
     Route: 042
     Dates: start: 20231115, end: 20231126
  10. ONDANSETRON [Suspect]
     Active Substance: ONDANSETRON
     Indication: Product used for unknown indication
     Dosage: 8 MG, QD
     Route: 042
     Dates: start: 20231031, end: 20231129
  11. CYCLOSPORINE [Suspect]
     Active Substance: CYCLOSPORINE
     Indication: Prophylaxis against graft versus host disease
     Dosage: 1 DOSAGE FORM, QD
     Route: 042
     Dates: start: 20231112, end: 20231127
  12. URSODIOL [Suspect]
     Active Substance: URSODIOL
     Indication: Venoocclusive disease
     Dosage: 3 DOSAGE FORM, QD
     Route: 048
     Dates: start: 20231031
  13. VALACYCLOVIR HYDROCHLORIDE [Suspect]
     Active Substance: VALACYCLOVIR HYDROCHLORIDE
     Indication: Infection prophylaxis
     Dosage: 1 G, QD
     Route: 048
     Dates: start: 20231115, end: 20231126

REACTIONS (1)
  - Cardiac failure [Recovered/Resolved with Sequelae]

NARRATIVE: CASE EVENT DATE: 20231116
